FAERS Safety Report 21689804 (Version 2)
Quarter: 2022Q4

REPORT INFORMATION
  Report Type: Report from Study
  Country: US (occurrence: US)
  Receive Date: 20221206
  Receipt Date: 20221207
  Transmission Date: 20230113
  Serious: Yes (Death, Life-Threatening, Hospitalization, Other)
  Sender: FDA-Public Use
  Company Number: US-BRISTOL-MYERS SQUIBB COMPANY-2022-137023

PATIENT
  Age: 61 Year
  Sex: Male
  Weight: 82.7 kg

DRUGS (30)
  1. PACLITAXEL [Suspect]
     Active Substance: PACLITAXEL
     Indication: Pancreatic carcinoma metastatic
     Dosage: DATE OF LAST TREATMENT PRIOR TO EVENT ONSET: 04-NOV-2022
     Route: 065
     Dates: start: 20220401, end: 20221111
  2. IPILIMUMAB [Suspect]
     Active Substance: IPILIMUMAB
     Indication: Pancreatic carcinoma metastatic
     Dosage: DATE OF LAST TREATMENT PRIOR TO EVENT ONSET: 03-JUN-2022
     Route: 065
     Dates: start: 20220422
  3. IPILIMUMAB [Suspect]
     Active Substance: IPILIMUMAB
     Route: 065
     Dates: start: 20220603
  4. HYDROXYCHLOROQUINE SULFATE [Suspect]
     Active Substance: HYDROXYCHLOROQUINE SULFATE
     Indication: Pancreatic carcinoma metastatic
     Dosage: DATE OF LAST TREATMENT PRIOR TO EVENT ONSET: 04-NOV-2022
     Route: 065
     Dates: start: 20220401, end: 20221105
  5. GEMCITABINE HYDROCHLORIDE [Suspect]
     Active Substance: GEMCITABINE HYDROCHLORIDE
     Indication: Pancreatic carcinoma metastatic
     Dosage: DATE OF LAST TREATMENT PRIOR TO EVENT ONSET: 04-NOV-2022
     Route: 065
     Dates: start: 20220401, end: 20221111
  6. PEPCID [Concomitant]
     Active Substance: FAMOTIDINE
     Indication: Dyspepsia
     Dosage: DAILY PRN
     Route: 048
     Dates: start: 200001
  7. DESYREL [Concomitant]
     Active Substance: TRAZODONE HYDROCHLORIDE
     Indication: Depression
     Dosage: HS PRN
     Route: 048
     Dates: start: 20100621
  8. EMLA [Concomitant]
     Active Substance: LIDOCAINE\PRILOCAINE
     Indication: Prophylaxis
     Dosage: 2.5-5%, PRN
     Route: 061
     Dates: start: 20220303
  9. XANAX [Concomitant]
     Active Substance: ALPRAZOLAM
     Indication: Anxiety
     Dosage: PRN
     Route: 061
     Dates: start: 20220310
  10. ULTRAM [Concomitant]
     Active Substance: TRAMADOL HYDROCHLORIDE
     Indication: Pain
     Dosage: PRN
     Route: 048
     Dates: start: 20220315
  11. ZOLOFT [Concomitant]
     Active Substance: SERTRALINE HYDROCHLORIDE
     Indication: Depression
     Dosage: DAILY
     Route: 048
     Dates: start: 20220322
  12. NORCO [Concomitant]
     Active Substance: ACETAMINOPHEN\HYDROCODONE BITARTRATE
     Indication: Pain
     Dosage: 5MG-325MG, PRN
     Route: 048
     Dates: start: 20220327
  13. ROXICODONE [Concomitant]
     Active Substance: OXYCODONE HYDROCHLORIDE
     Indication: Pain
     Dosage: PRN
     Route: 048
     Dates: start: 20220401
  14. FLEXERIL [Concomitant]
     Active Substance: CYCLOBENZAPRINE HYDROCHLORIDE
     Indication: Pain
     Route: 048
     Dates: start: 20220401
  15. IBUPROFEN [Concomitant]
     Active Substance: IBUPROFEN
     Indication: Pain
     Route: 048
     Dates: start: 20220527
  16. NAPROXEN [Concomitant]
     Active Substance: NAPROXEN
     Indication: Pain
     Route: 048
     Dates: start: 20220527
  17. TESSALON [Concomitant]
     Active Substance: BENZONATATE
     Indication: Cough
     Dosage: PRN
     Route: 048
     Dates: start: 20220805
  18. METHYLPHENIDATE HYDROCHLORIDE [Concomitant]
     Active Substance: METHYLPHENIDATE HYDROCHLORIDE
     Indication: Fatigue
     Dosage: DAILY
     Route: 048
     Dates: start: 20220809
  19. BACTRIM DS [Concomitant]
     Active Substance: SULFAMETHOXAZOLE\TRIMETHOPRIM
     Indication: Cellulitis
     Dosage: 800-160 MG
     Route: 048
     Dates: start: 20220815
  20. ZOLOFT [Concomitant]
     Active Substance: SERTRALINE HYDROCHLORIDE
     Indication: Affective disorder
     Dosage: DAILY
     Route: 048
     Dates: start: 20220816
  21. KLONOPIN [Concomitant]
     Active Substance: CLONAZEPAM
     Indication: Anxiety
     Dosage: DAILY PRN
     Route: 048
     Dates: start: 20220816
  22. DESYREL [Concomitant]
     Active Substance: TRAZODONE HYDROCHLORIDE
     Indication: Anxiety
     Dosage: NIGHTLY
     Route: 048
     Dates: start: 20220816
  23. SENOKOT [Concomitant]
     Active Substance: SENNOSIDES
     Indication: Faeces hard
     Dosage: NIGHTLY
     Route: 048
     Dates: start: 20220922
  24. LOMOTIL [Concomitant]
     Active Substance: ATROPINE SULFATE\DIPHENOXYLATE HYDROCHLORIDE
     Indication: Diarrhoea
     Dosage: 2.5MG - 0.025MG, PRN
     Route: 048
     Dates: start: 20220930
  25. ALDACTONE [Concomitant]
     Active Substance: SPIRONOLACTONE
     Indication: Oedema
     Dosage: DAILY
     Route: 048
     Dates: start: 20220930
  26. NEURONTIN [GABAPENTIN] [Concomitant]
     Indication: Neuropathy peripheral
     Dosage: NIGHTLY
     Route: 048
     Dates: start: 20221028
  27. LASIX [Concomitant]
     Active Substance: FUROSEMIDE
     Indication: Oedema
     Route: 048
     Dates: start: 20221028
  28. ZINC SULFATE [Concomitant]
     Active Substance: ZINC SULFATE
     Indication: Decreased appetite
     Dosage: DAILY
     Route: 048
     Dates: start: 20221028, end: 20221101
  29. ZOFRAN [Concomitant]
     Active Substance: ONDANSETRON HYDROCHLORIDE
     Indication: Prophylaxis
     Dosage: FREQUENCY: ONCE
     Route: 042
     Dates: start: 20220708
  30. PROCHLORPERAZINE [Concomitant]
     Active Substance: PROCHLORPERAZINE
     Indication: Nausea
     Dosage: PRN
     Route: 042
     Dates: start: 20220715

REACTIONS (2)
  - Multiple organ dysfunction syndrome [Fatal]
  - Pneumonitis [Recovered/Resolved with Sequelae]

NARRATIVE: CASE EVENT DATE: 20221105
